FAERS Safety Report 15488798 (Version 3)
Quarter: 2018Q4

REPORT INFORMATION
  Report Type: Report from Study
  Country: US (occurrence: US)
  Receive Date: 20181011
  Receipt Date: 20181024
  Transmission Date: 20190205
  Serious: No
  Sender: FDA-Public Use
  Company Number: US-PFIZER INC-2018406459

PATIENT
  Age: 39 Year
  Sex: Female

DRUGS (1)
  1. METHYLPREDNISOLONE ACETATE. [Suspect]
     Active Substance: METHYLPREDNISOLONE ACETATE
     Dosage: UNK

REACTIONS (1)
  - Depression [Unknown]
